FAERS Safety Report 7867532-5 (Version None)
Quarter: 2011Q4

REPORT INFORMATION
  Report Type: 
  Country: None (occurrence: None)
  Receive Date: 20111028
  Receipt Date: 20111014
  Transmission Date: 20120403
  Serious: Yes (Hospitalization, Other)
  Sender: FDA-Public Use
  Company Number: PHHY2011CA29547

PATIENT
  Sex: Female

DRUGS (8)
  1. HYZAAR [Concomitant]
  2. METFORMIN [Concomitant]
     Dosage: 500 MG, TID
  3. PANTOPRAZOLE SODIUM [Concomitant]
     Dosage: 40 MG, UNK
  4. FERROUS SULFATE TAB [Concomitant]
     Dosage: 300 MG, BID
  5. SANDOSTATIN LAR [Suspect]
     Dosage: 20 MG, QMO
     Route: 030
     Dates: start: 20110912
  6. ACT [Concomitant]
     Dosage: 325 MG, UNK
  7. ASPIRIN [Concomitant]
  8. SANDOSTATIN LAR [Suspect]
     Indication: ANGIODYSPLASIA
     Dosage: 20 MG, QMO
     Route: 030
     Dates: start: 20090505

REACTIONS (8)
  - SYNCOPE [None]
  - ASTHENIA [None]
  - FATIGUE [None]
  - CHOLANGITIS [None]
  - BLOOD POTASSIUM DECREASED [None]
  - PAIN IN EXTREMITY [None]
  - NEPHROLITHIASIS [None]
  - ANAEMIA [None]
